FAERS Safety Report 8309388-2 (Version None)
Quarter: 2012Q2

REPORT INFORMATION
  Report Type: 
  Country: None (occurrence: None)
  Receive Date: 20120424
  Receipt Date: 20120424
  Transmission Date: 20120825
  Serious: Yes (Other)
  Sender: FDA-Public Use
  Company Number: None

PATIENT
  Sex: Female
  Weight: 95.5 kg

DRUGS (2)
  1. DEXAMETHASONE [Concomitant]
  2. THALOMID [Suspect]
     Indication: MULTIPLE MYELOMA
     Dosage: 50 MG DAILY PO
     Route: 048
     Dates: start: 20120229, end: 20120307

REACTIONS (1)
  - DRUG HYPERSENSITIVITY [None]
